FAERS Safety Report 25523518 (Version 1)
Quarter: 2025Q3

REPORT INFORMATION
  Report Type: Spontaneous
  Country: EU (occurrence: None)
  Receive Date: 20250707
  Receipt Date: 20250707
  Transmission Date: 20251021
  Serious: Yes (Hospitalization)
  Sender: ENCUBE ETHICALS
  Company Number: EU-Encube-002017

PATIENT
  Age: 9 Decade
  Sex: Female

DRUGS (8)
  1. METRONIDAZOLE [Suspect]
     Active Substance: METRONIDAZOLE
     Indication: Abscess
     Route: 048
  2. LEFLUNOMIDE [Suspect]
     Active Substance: LEFLUNOMIDE
     Indication: Rheumatoid arthritis
  3. HYDROXYCHLOROQUINE [Suspect]
     Active Substance: HYDROXYCHLOROQUINE
     Indication: Rheumatoid arthritis
  4. AMOXICILLIN [Concomitant]
     Active Substance: AMOXICILLIN
     Indication: Abscess
  5. ENALAPRIL [Concomitant]
     Active Substance: ENALAPRIL
     Indication: Hypertension
  6. HYDROCHLOROTHIAZIDE [Concomitant]
     Active Substance: HYDROCHLOROTHIAZIDE
     Indication: Hypertension
  7. SIMVASTATIN [Concomitant]
     Active Substance: SIMVASTATIN
     Indication: Dyslipidaemia
  8. PREDNISONE [Concomitant]
     Active Substance: PREDNISONE
     Indication: Rheumatoid arthritis

REACTIONS (13)
  - Neurotoxicity [Recovering/Resolving]
  - Polyneuropathy [Not Recovered/Not Resolved]
  - Off label use [Unknown]
  - Dysarthria [Recovered/Resolved]
  - Bradyphrenia [Recovering/Resolving]
  - Nystagmus [Recovered/Resolved]
  - Dysmetria [Recovering/Resolving]
  - Somnolence [Recovered/Resolved]
  - Vomiting [Recovering/Resolving]
  - Disorientation [Recovering/Resolving]
  - Toxicity to various agents [Recovering/Resolving]
  - Nausea [Recovering/Resolving]
  - Dizziness [Recovered/Resolved]
